FAERS Safety Report 5370913-5 (Version None)
Quarter: 2007Q2

REPORT INFORMATION
  Report Type: 
  Country: None (occurrence: None)
  Receive Date: 20070626
  Receipt Date: 20070614
  Transmission Date: 20071010
  Serious: Yes (Other)
  Sender: FDA-Public Use
  Company Number: AU-SHR-AU-2007-022304

PATIENT
  Age: 54 Year
  Sex: Male

DRUGS (2)
  1. SOTALOL HYDROCHLORIDE [Suspect]
     Dosage: 80 MG, 2X/DAY
  2. ALLOPURINOL [Concomitant]
     Dosage: 100 MG, 1X/DAY

REACTIONS (3)
  - ATELECTASIS [None]
  - CARDIAC DISORDER [None]
  - PULMONARY OEDEMA [None]
